FAERS Safety Report 13467916 (Version 1)
Quarter: 2017Q2

REPORT INFORMATION
  Report Type: Spontaneous
  Country: IR (occurrence: IR)
  Receive Date: 20170421
  Receipt Date: 20170421
  Transmission Date: 20170830
  Serious: Yes (Death, Hospitalization)
  Sender: FDA-Public Use
  Company Number: IR-JNJFOC-20170420020

PATIENT

DRUGS (1)
  1. TRAMADOL HYDROCHLORIDE. [Suspect]
     Active Substance: TRAMADOL HYDROCHLORIDE
     Indication: PRODUCT USED FOR UNKNOWN INDICATION
     Route: 065

REACTIONS (8)
  - Drug use disorder [Unknown]
  - Overdose [Unknown]
  - Completed suicide [Fatal]
  - Seizure [Unknown]
  - Nausea [Unknown]
  - Toxicity to various agents [Fatal]
  - Poisoning [Unknown]
  - Vomiting [Unknown]
